FAERS Safety Report 7627632-1 (Version None)
Quarter: 2011Q3

REPORT INFORMATION
  Report Type: 
  Country: None (occurrence: None)
  Receive Date: 20110721
  Receipt Date: 20110718
  Transmission Date: 20111222
  Serious: Yes (Other)
  Sender: FDA-Public Use
  Company Number: BR-PFIZER INC-2011097600

PATIENT
  Age: 75 Year
  Sex: Female
  Weight: 84 kg

DRUGS (11)
  1. VARENICLINE TARTRATE [Suspect]
     Dosage: 1 MG, 2X/DAY
     Route: 048
     Dates: start: 20110101, end: 20110101
  2. AAS INFANTIL [Concomitant]
  3. LOSARTAN POTASSIUM AND HYDROCHLOROTHIAZIDE [Concomitant]
     Indication: BLOOD PRESSURE ABNORMAL
     Dosage: 50/12.5 MG
     Dates: start: 20000101
  4. BONIVA [Concomitant]
     Indication: OSTEOARTHRITIS
     Dosage: UNK
     Dates: start: 20090101
  5. CALCIUM [Concomitant]
     Indication: OSTEOARTHRITIS
     Dosage: UNK
     Dates: start: 20090101
  6. SIMVASTATIN [Concomitant]
     Indication: BLOOD CHOLESTEROL
     Dosage: 40 MG, 1X/DAY
     Dates: start: 20000101
  7. SIMVASTATIN [Concomitant]
     Indication: ARTERIOSCLEROSIS CORONARY ARTERY
  8. SIMVASTATIN [Concomitant]
     Indication: CAROTID ARTERY DISEASE
  9. VARENICLINE TARTRATE [Suspect]
     Indication: TOBACCO USER
     Dosage: UNK
     Route: 048
     Dates: start: 20110418, end: 20110101
  10. AAS INFANTIL [Concomitant]
     Indication: CARDIOVASCULAR DISORDER
     Dosage: 100 MG, 1X/DAY
     Dates: start: 20000101
  11. BONIVA [Concomitant]
     Indication: CALCIUM DEFICIENCY

REACTIONS (6)
  - MALAISE [None]
  - BEDRIDDEN [None]
  - NAUSEA [None]
  - ASTHENIA [None]
  - VOMITING [None]
  - EATING DISORDER [None]
